FAERS Safety Report 6566908-6 (Version None)
Quarter: 2010Q1

REPORT INFORMATION
  Report Type: 
  Country: None (occurrence: None)
  Receive Date: 20100202
  Receipt Date: 20100127
  Transmission Date: 20100710
  Serious: Yes (Life-Threatening, Hospitalization)
  Sender: FDA-Public Use
  Company Number: IT-ROCHE-682436

PATIENT
  Sex: Female
  Weight: 46 kg

DRUGS (9)
  1. BEVACIZUMAB [Suspect]
     Indication: DRUG USE FOR UNKNOWN INDICATION
     Dosage: FORM: VIALS. FREQUENCY: 2 WEEKS. LAST DOSE PRIOR TO SAE: 11 DEC 2009.
     Route: 042
     Dates: start: 20070620, end: 20091211
  2. CAPECITABINE [Suspect]
     Indication: DRUG USE FOR UNKNOWN INDICATION
     Dosage: LAST DOSE PRIOR TO SAE: 12 JAN 2010.
     Route: 048
     Dates: start: 20070620, end: 20100112
  3. ENDOXAN [Suspect]
     Indication: DRUG USE FOR UNKNOWN INDICATION
     Dosage: LAST DOSE PRIOR TO SAE: 12 JAN 2010.
     Route: 048
     Dates: start: 20070620, end: 20100112
  4. TIMOPTOL [Suspect]
     Indication: DRUG USE FOR UNKNOWN INDICATION
     Route: 065
     Dates: start: 20090218
  5. NORVASC [Concomitant]
  6. CALCIFEDIOL [Concomitant]
     Dosage: DRUG NAME REPORTED AS DIDROGYL
     Dates: start: 20040101
  7. CALCIT [Concomitant]
     Dosage: TDD: 1/2 TB X 2/DAY
     Dates: start: 20040101
  8. OPTINATE [Concomitant]
     Dosage: TDD: 1 TB/WEEK
     Dates: start: 20040101
  9. CALCIUM/VITAMIN D [Concomitant]
     Dosage: REPORTED AS VIT D + CALCIUM SUPPL + BIPHOSPHONATE
     Dates: start: 20040101

REACTIONS (1)
  - ATRIOVENTRICULAR BLOCK [None]
